FAERS Safety Report 17070317 (Version 1)
Quarter: 2019Q4

REPORT INFORMATION
  Report Type: Spontaneous
  Country: BR (occurrence: BR)
  Receive Date: 20191125
  Receipt Date: 20191125
  Transmission Date: 20200122
  Serious: Yes (Death, Life-Threatening, Hospitalization, Other)
  Sender: FDA-Public Use
  Company Number: BR-STRIDES ARCOLAB LIMITED-2019SP011714

PATIENT
  Age: 25 Year
  Sex: Female

DRUGS (12)
  1. MYCOPHENOLATE MOFETIL. [Suspect]
     Active Substance: MYCOPHENOLATE MOFETIL
     Indication: IMMUNOSUPPRESSANT DRUG THERAPY
     Dosage: MAINTENANCE IMMUNOSUPPRESSION
     Route: 065
  2. BASILIXIMAB [Suspect]
     Active Substance: BASILIXIMAB
     Indication: IMMUNOSUPPRESSANT DRUG THERAPY
     Dosage: INDUCTION IMMUNOSUPPRESSION
     Route: 065
  3. METHYLPREDNISOLONE. [Suspect]
     Active Substance: METHYLPREDNISOLONE
     Indication: IMMUNOSUPPRESSANT DRUG THERAPY
     Dosage: INDUCTION IMMUNOSUPPRESSION
     Route: 065
  4. CICLOSPORIN [Suspect]
     Active Substance: CYCLOSPORINE
     Indication: IMMUNOSUPPRESSANT DRUG THERAPY
     Dosage: MAINTENANCE IMMUNOSUPPRESSION
     Route: 065
  5. PIPERACILLIN TAZOBACTAM PA [Concomitant]
     Active Substance: PIPERACILLIN SODIUM\TAZOBACTAM SODIUM
     Indication: BACTERIAL DISEASE CARRIER
     Dosage: UNK
     Route: 065
  6. FLUCONAZOLE. [Concomitant]
     Active Substance: FLUCONAZOLE
     Indication: VULVOVAGINAL CANDIDIASIS
     Dosage: UNK
     Route: 065
  7. GANCICLOVIR. [Concomitant]
     Active Substance: GANCICLOVIR
     Indication: PROPHYLAXIS
     Dosage: UNK
     Route: 065
  8. PREDNISOLONE. [Suspect]
     Active Substance: PREDNISOLONE
     Indication: IMMUNOSUPPRESSANT DRUG THERAPY
     Dosage: MAINTENANCE IMMUNOSUPPRESSION
     Route: 065
  9. SULFAMETHOXAZOLE AND TRIMETHOPRIM [Concomitant]
     Active Substance: SULFAMETHOXAZOLE\TRIMETHOPRIM
     Indication: PROPHYLAXIS
     Dosage: UNK
     Route: 065
  10. AMPHOTERICIN [Concomitant]
     Active Substance: AMPHOTERICIN B
     Indication: PROPHYLAXIS
     Dosage: UNK (RESPIRATORY (INHALATION))
  11. TEICOPLANIN [Concomitant]
     Active Substance: TEICOPLANIN
     Indication: BACTERIAL DISEASE CARRIER
     Dosage: UNK
     Route: 065
  12. TOBRAMYCIN. [Concomitant]
     Active Substance: TOBRAMYCIN
     Indication: PROPHYLAXIS
     Dosage: UNK
     Route: 065

REACTIONS (12)
  - Shock [Fatal]
  - Lymphadenitis [Fatal]
  - Liver abscess [Unknown]
  - Enteritis [Fatal]
  - Hepatic necrosis [Fatal]
  - Intestinal ischaemia [Unknown]
  - Colitis [Not Recovered/Not Resolved]
  - Gastrointestinal necrosis [Fatal]
  - Thrombosis [Fatal]
  - Metabolic acidosis [Unknown]
  - Renal impairment [Unknown]
  - Gastrointestinal mucormycosis [Fatal]
